FAERS Safety Report 5832229-X (Version None)
Quarter: 2008Q3

REPORT INFORMATION
  Report Type: 
  Country: None (occurrence: None)
  Receive Date: 20080804
  Receipt Date: 20080801
  Transmission Date: 20090109
  Serious: Yes (Hospitalization)
  Sender: FDA-Public Use
  Company Number: BE-BRISTOL-MYERS SQUIBB COMPANY-13950753

PATIENT
  Age: 22 Year
  Sex: Male

DRUGS (6)
  1. CISPLATIN [Suspect]
     Indication: GERM CELL CANCER
     Dosage: DATE OF 1ST ADMINISTRATION=16FEB07; CUMULATIVE DOSE GIVEN=800MG.
     Route: 042
     Dates: start: 20070423, end: 20070423
  2. ETOPOSIDE [Suspect]
     Indication: GERM CELL CANCER
     Dosage: DATE OF 1ST ADMINISTRATION= 16FEB07; CUMULATIVE DOSE GIVEN= 4000MG.
     Route: 042
     Dates: start: 20070423, end: 20070423
  3. BLEOMYCIN HCL [Suspect]
     Indication: GERM CELL CANCER
     Dosage: DATE OF 1ST ADMINISTRATION= 17FEB07; CUMULATIVE DOSE GIVEN= 240MG.
     Route: 042
     Dates: start: 20070406, end: 20070406
  4. ENOXAPARIN SODIUM [Concomitant]
     Dates: start: 20070319, end: 20070507
  5. MORPHINE [Concomitant]
     Dates: start: 20070506, end: 20070508
  6. PRIMPERAN TAB [Concomitant]
     Dates: start: 20070506, end: 20070508

REACTIONS (2)
  - FEBRILE NEUTROPENIA [None]
  - PULMONARY EMBOLISM [None]
